FAERS Safety Report 6234286-8 (Version None)
Quarter: 2009Q2

REPORT INFORMATION
  Report Type: 
  Country: None (occurrence: None)
  Receive Date: 20090618
  Receipt Date: 20090615
  Transmission Date: 20091009
  Serious: Yes (Life-Threatening)
  Sender: FDA-Public Use
  Company Number: FR-ASTRAZENECA-2009CG01242

PATIENT
  Age: 23842 Day
  Sex: Female

DRUGS (3)
  1. CRESTOR [Suspect]
     Indication: HYPERCHOLESTEROLAEMIA
     Route: 048
     Dates: start: 20070101, end: 20080114
  2. AERIUS [Concomitant]
  3. NEBILOX [Concomitant]

REACTIONS (1)
  - PANCREATITIS NECROTISING [None]
